FAERS Safety Report 15286487 (Version 4)
Quarter: 2019Q2

REPORT INFORMATION
  Report Type: Report from Study
  Country: US (occurrence: US)
  Receive Date: 20180816
  Receipt Date: 20190610
  Transmission Date: 20190711
  Serious: Yes (Death, Hospitalization, Other)
  Sender: FDA-Public Use
  Company Number: US-VIFOR (INTERNATIONAL) INC.-VIT-2018-08010

PATIENT
  Age: 66 Year
  Sex: Female
  Weight: 62 kg

DRUGS (1)
  1. VELTASSA [Suspect]
     Active Substance: PATIROMER
     Indication: HYPERKALAEMIA
     Route: 048
     Dates: start: 20160430

REACTIONS (8)
  - Malaise [Not Recovered/Not Resolved]
  - Dyspnoea [Recovered/Resolved]
  - Iron deficiency anaemia [Recovered/Resolved]
  - Death [Fatal]
  - Fluid overload [Recovered/Resolved]
  - Cardiac disorder [Not Recovered/Not Resolved]
  - End stage renal disease [Recovered/Resolved]
  - Product dose omission [Not Recovered/Not Resolved]

NARRATIVE: CASE EVENT DATE: 20190225
